FAERS Safety Report 9643101 (Version 1)
Quarter: 2013Q4

REPORT INFORMATION
  Report Type: Spontaneous
  Country: GB (occurrence: None)
  Receive Date: 20131022
  Receipt Date: 20131022
  Transmission Date: 20140711
  Serious: Yes (Disabling)
  Sender: FDA-Public Use
  Company Number: AUR-APL-2013-08579

PATIENT
  Age: 61 Year
  Sex: Female
  Weight: 38 kg

DRUGS (19)
  1. SERTRALINE (SERTRALINE) [Suspect]
     Indication: DEPRESSION
     Dosage: (50 MG, 1 IN 1 D)
     Route: 048
     Dates: start: 20130819, end: 20130919
  2. GRAPEFRUIT JUICE [Suspect]
     Indication: PRODUCT USED FOR UNKNOWN INDICATION
     Route: 048
  3. ASPIRIN (ACETYLSALICYLIC ACID) [Concomitant]
  4. BENDROFLUMETHIAZIDE (BENDROFLUMETHIAZIDE) [Concomitant]
  5. BIOTENE DRY MOUTH PRODUCT (BIOTENE /06680101/) [Concomitant]
  6. BUPRENORPHINE (BUPRENOPHINE) [Concomitant]
  7. DIAZEPAM (DIAZEPAM) [Concomitant]
  8. FLUTICASONE FUROATE (FLUTICASONE FUROATE) [Concomitant]
  9. FORTISIP (CARBOHYDRATES NOS W/FATS NOS/MINERA/07459601/) [Concomitant]
  10. HYLO-FORTE (HYALURONATE SODIUM) [Concomitant]
  11. MEBERVERINE (MEBERVERINE) [Concomitant]
  12. MULTIVITAMIN PREPARATION (THERAGRAN /02160401/) [Concomitant]
  13. PROBIOTIC (BIFIDOBACTERIUM LACTIS) [Concomitant]
  14. SERETIDE (SERETIDE) [Concomitant]
  15. VENTOLIN (SALBUTAMOL) [Concomitant]
  16. VITAMIN A (RETINOL) [Concomitant]
  17. VITAMIN B COMPLEX (VITAMIN B COMPLEX) [Concomitant]
  18. VITAMIN D (ERGOCALCIFEROL) [Concomitant]
  19. ZINC (ZINC) [Concomitant]

REACTIONS (4)
  - Confusional state [None]
  - Coordination abnormal [None]
  - Aphasia [None]
  - Fall [None]
